FAERS Safety Report 18371706 (Version 3)
Quarter: 2021Q3

REPORT INFORMATION
  Report Type: Report from Study
  Country: US (occurrence: US)
  Receive Date: 20201012
  Receipt Date: 20210922
  Transmission Date: 20211014
  Serious: No
  Sender: FDA-Public Use
  Company Number: NVSC2020US269395

PATIENT
  Sex: Female

DRUGS (1)
  1. GILENYA [Suspect]
     Active Substance: FINGOLIMOD HYDROCHLORIDE
     Indication: MULTIPLE SCLEROSIS
     Dosage: 0.5 MG, QD
     Route: 048

REACTIONS (7)
  - Back pain [Unknown]
  - Headache [Unknown]
  - Neck pain [Unknown]
  - COVID-19 [Unknown]
  - Pain in extremity [Unknown]
  - Memory impairment [Unknown]
  - Illness [Recovering/Resolving]
